FAERS Safety Report 8430870-1 (Version None)
Quarter: 2012Q2

REPORT INFORMATION
  Report Type: 
  Country: None (occurrence: None)
  Receive Date: 20120612
  Receipt Date: 20120530
  Transmission Date: 20120825
  Serious: No
  Sender: FDA-Public Use
  Company Number: US-ASTRAZENECA-2012SE36394

PATIENT
  Age: 29 Year
  Sex: Male

DRUGS (3)
  1. SEROQUEL XR [Suspect]
     Route: 048
  2. SEROQUEL XR [Suspect]
     Route: 048
  3. TRAZODONE HCL [Concomitant]

REACTIONS (4)
  - INTENTIONAL DRUG MISUSE [None]
  - OBSESSIVE THOUGHTS [None]
  - INSOMNIA [None]
  - ANXIETY [None]
